FAERS Safety Report 7050595-7 (Version None)
Quarter: 2010Q4

REPORT INFORMATION
  Report Type: 
  Country: None (occurrence: None)
  Receive Date: 20101018
  Receipt Date: 20101006
  Transmission Date: 20110411
  Serious: Yes (Hospitalization, Other)
  Sender: FDA-Public Use
  Company Number: GB-ELI_LILLY_AND_COMPANY-GB201010001811

PATIENT
  Age: 65 Year
  Sex: Female

DRUGS (8)
  1. EXENATIDE [Suspect]
     Indication: TYPE 2 DIABETES MELLITUS
     Dosage: 5 UG, 2/D
     Route: 065
  2. EXENATIDE [Suspect]
     Dosage: 10 UG, 2/D
     Route: 065
  3. METFORMIN HCL [Concomitant]
     Dosage: 2 G, DAILY (1/D)
     Route: 065
  4. LEVEMIR [Concomitant]
     Dosage: 100 U, DAILY (1/D)
     Route: 065
  5. LISINOPRIL [Concomitant]
     Dosage: 10 MG, DAILY (1/D)
     Route: 065
  6. ORLISTAT [Concomitant]
     Dosage: 120 MG, DAILY (1/D)
     Route: 065
  7. FRUSEMIDE [Concomitant]
     Dosage: 20 MG, DAILY (1/D)
     Route: 065
  8. SPIRONOLACTONE [Concomitant]
     Dosage: 25 MG, DAILY (1/D)
     Route: 065

REACTIONS (4)
  - NAUSEA [None]
  - RENAL FAILURE ACUTE [None]
  - TUBULOINTERSTITIAL NEPHRITIS [None]
  - WEIGHT DECREASED [None]
